FAERS Safety Report 9359258 (Version 1)
Quarter: 2013Q2

REPORT INFORMATION
  Report Type: Spontaneous
  Country: US (occurrence: US)
  Receive Date: 20130620
  Receipt Date: 20130620
  Transmission Date: 20140414
  Serious: No
  Sender: FDA-Public Use
  Company Number: US-PFIZER INC-2013185225

PATIENT
  Age: 52 Year
  Sex: Male
  Weight: 86.17 kg

DRUGS (3)
  1. LYRICA [Suspect]
     Indication: DIABETIC NEUROPATHY
     Dosage: 75 MG, 2X/DAY
     Route: 048
     Dates: start: 20130617
  2. ACTOS [Concomitant]
     Indication: DIABETES MELLITUS
     Dosage: 45 MG, 1X/DAY
  3. GLIMEPIRIDE [Concomitant]
     Indication: DIABETES MELLITUS
     Dosage: 2TABLETS OF 1MG IN MORNING,1TABLET OF 1MG AT NOON AND 2TABLETS OF 1MG AT NIGHT, TOTAL OF 5MG A DAY

REACTIONS (1)
  - Pain in extremity [Unknown]
